FAERS Safety Report 23360935 (Version 3)
Quarter: 2024Q1

REPORT INFORMATION
  Report Type: Spontaneous
  Country: US (occurrence: US)
  Receive Date: 20240103
  Receipt Date: 20240112
  Transmission Date: 20240409
  Serious: No
  Sender: FDA-Public Use
  Company Number: US-OPELLA-2023OHG020731

PATIENT

DRUGS (1)
  1. ICY HOT MEDICATED, ADVANCED RELIEF [Suspect]
     Active Substance: MENTHOL
     Indication: Pain
     Dosage: BATCH: 22G312 AND EXPIRY DATE: 01-JUL-2023
     Route: 061

REACTIONS (2)
  - Drug ineffective [Unknown]
  - No adverse event [Unknown]
